APPROVED DRUG PRODUCT: VERAPAMIL HYDROCHLORIDE
Active Ingredient: VERAPAMIL HYDROCHLORIDE
Strength: 240MG
Dosage Form/Route: TABLET, EXTENDED RELEASE;ORAL
Application: A072922 | Product #001
Applicant: PLIVA INC
Approved: Mar 1, 1996 | RLD: No | RS: No | Type: DISCN